FAERS Safety Report 23148551 (Version 1)
Quarter: 2023Q4

REPORT INFORMATION
  Report Type: Spontaneous
  Country: CZ (occurrence: CZ)
  Receive Date: 20231106
  Receipt Date: 20231106
  Transmission Date: 20240110
  Serious: Yes (Hospitalization, Other)
  Sender: FDA-Public Use
  Company Number: CZ-BRISTOL-MYERS SQUIBB COMPANY-2023-156442

PATIENT
  Age: 69 Year
  Sex: Female

DRUGS (4)
  1. OPDIVO [Suspect]
     Active Substance: NIVOLUMAB
     Indication: Non-small cell lung cancer metastatic
     Dosage: DOSE : UNAVAILABLE;     FREQ : EVERY 2 WEEKS
     Dates: start: 202008, end: 202203
  2. DENOSUMAB [Concomitant]
     Active Substance: DENOSUMAB
     Indication: Non-small cell lung cancer metastatic
     Route: 058
  3. CALCIUM [Concomitant]
     Active Substance: CALCIUM
     Indication: Non-small cell lung cancer metastatic
  4. CHOLECALCIFEROL [Concomitant]
     Active Substance: CHOLECALCIFEROL
     Indication: Non-small cell lung cancer metastatic

REACTIONS (11)
  - Immune-mediated enterocolitis [Recovering/Resolving]
  - Hypothyroidism [Unknown]
  - Urticaria [Recovered/Resolved]
  - Aspartate aminotransferase increased [Recovered/Resolved]
  - Alanine aminotransferase increased [Recovered/Resolved]
  - Gamma-glutamyltransferase increased [Recovered/Resolved]
  - Burning sensation [Recovered/Resolved]
  - Weight decreased [Unknown]
  - Anal abscess [Unknown]
  - Non-small cell lung cancer [Unknown]
  - Osteolysis [Unknown]

NARRATIVE: CASE EVENT DATE: 20200101
